FAERS Safety Report 17819011 (Version 1)
Quarter: 2020Q2

REPORT INFORMATION
  Report Type: Spontaneous
  Country: US (occurrence: US)
  Receive Date: 20200523
  Receipt Date: 20200523
  Transmission Date: 20200714
  Serious: No
  Sender: FDA-Public Use
  Company Number: US-009507513-2005USA007007

PATIENT
  Age: 83 Year
  Sex: Female

DRUGS (1)
  1. INTRON A [Suspect]
     Active Substance: INTERFERON ALFA-2B
     Indication: NEOPLASM MALIGNANT
     Dosage: 1.2 DOSAGE FORM (STRENGTH: 18MU SOL, DOSE: 1.2 MU, FREQUENCY: OTHER)
     Route: 058
     Dates: start: 2017

REACTIONS (2)
  - Adductor vocal cord weakness [Unknown]
  - Throat irritation [Unknown]

NARRATIVE: CASE EVENT DATE: 20200520
